FAERS Safety Report 7471804-6 (Version None)
Quarter: 2011Q2

REPORT INFORMATION
  Report Type: 
  Country: None (occurrence: None)
  Receive Date: 20110511
  Receipt Date: 20100517
  Transmission Date: 20111010
  Serious: No
  Sender: FDA-Public Use
  Company Number: A0860018A

PATIENT
  Age: 51 Year
  Sex: Female

DRUGS (2)
  1. TYKERB [Suspect]
     Indication: BREAST CANCER
     Dosage: 500MG PER DAY
     Route: 048
     Dates: start: 20100301
  2. MULTIPLE MEDICATIONS [Concomitant]

REACTIONS (4)
  - STOMATITIS [None]
  - DIARRHOEA [None]
  - RASH [None]
  - NASAL ULCER [None]
